FAERS Safety Report 8824619 (Version 6)
Quarter: 2013Q4

REPORT INFORMATION
  Report Type: Report from Study
  Country: CA (occurrence: CA)
  Receive Date: 20121004
  Receipt Date: 20131015
  Transmission Date: 20140711
  Serious: Yes (Other)
  Sender: FDA-Public Use
  Company Number: PHHY2012CA085861

PATIENT
  Age: 58 Year
  Sex: Female

DRUGS (5)
  1. SANDOSTATIN LAR [Suspect]
     Indication: ACROMEGALY
     Dosage: 10 MG, EVERY 4 WEEKS
     Route: 030
     Dates: start: 20110519
  2. SANDOSTATIN LAR [Suspect]
     Dosage: 20 MG, QMO
     Route: 030
     Dates: start: 201105
  3. SANDOSTATIN LAR [Suspect]
     Dosage: 10 MG, EVERY 6 WEEKS
     Route: 030
     Dates: end: 201112
  4. SANDOSTATIN LAR [Suspect]
     Dosage: 20 MG, EVERY 6 WEEKS
     Route: 030
  5. SOMATULINE AUTOGEL [Suspect]
     Dosage: UNK UKN, UNK
     Dates: start: 201112, end: 201204

REACTIONS (5)
  - Thyroid neoplasm [Recovering/Resolving]
  - Hepatic enzyme increased [Recovering/Resolving]
  - Spleen disorder [Unknown]
  - Hepatic steatosis [Unknown]
  - Weight decreased [Unknown]
